FAERS Safety Report 25192132 (Version 1)
Quarter: 2025Q2

REPORT INFORMATION
  Report Type: Spontaneous
  Country: US (occurrence: None)
  Receive Date: 20250413
  Receipt Date: 20250413
  Transmission Date: 20250717
  Serious: Yes (Disabling, Other)
  Sender: FDA-CTU
  Company Number: None

PATIENT
  Age: 56 Year
  Sex: Male
  Weight: 121.5 kg

DRUGS (1)
  1. TETRACYCLINE [Suspect]
     Active Substance: TETRACYCLINE
     Indication: Sinusitis

REACTIONS (3)
  - Tooth discolouration [None]
  - Tooth hypoplasia [None]
  - Tooth loss [None]

NARRATIVE: CASE EVENT DATE: 20250413
